FAERS Safety Report 10846961 (Version 1)
Quarter: 2015Q1

REPORT INFORMATION
  Report Type: Spontaneous
  Country: US (occurrence: US)
  Receive Date: 20150220
  Receipt Date: 20150220
  Transmission Date: 20150721
  Serious: Yes (Other)
  Sender: FDA-Public Use
  Company Number: US-TEVA-541013USA

PATIENT
  Age: 47 Year
  Sex: Female

DRUGS (1)
  1. COPAXONE [Suspect]
     Active Substance: GLATIRAMER ACETATE
     Indication: MULTIPLE SCLEROSIS
     Dates: start: 2014

REACTIONS (9)
  - Fall [Unknown]
  - Hypoaesthesia [Unknown]
  - Bladder disorder [Unknown]
  - Eye movement disorder [Unknown]
  - Multiple sclerosis relapse [Unknown]
  - Balance disorder [Unknown]
  - Seizure [Unknown]
  - Paralysis [Unknown]
  - Tremor [Unknown]

NARRATIVE: CASE EVENT DATE: 20150211
